FAERS Safety Report 8792655 (Version 5)
Quarter: 2015Q2

REPORT INFORMATION
  Report Type: Spontaneous
  Country: US (occurrence: US)
  Receive Date: 20120918
  Receipt Date: 20150525
  Transmission Date: 20150821
  Serious: Yes (Disabling, Other)
  Sender: FDA-Public Use
  Company Number: US-JNJFOC-20120503727

PATIENT
  Age: 55 Year
  Sex: Female
  Weight: 56.25 kg

DRUGS (7)
  1. LEXAPRO [Concomitant]
     Active Substance: ESCITALOPRAM OXALATE
     Route: 065
  2. XANAX [Concomitant]
     Active Substance: ALPRAZOLAM
     Route: 065
  3. REMICADE [Suspect]
     Active Substance: INFLIXIMAB
     Indication: CROHN^S DISEASE
     Route: 042
     Dates: end: 201205
  4. REMICADE [Suspect]
     Active Substance: INFLIXIMAB
     Indication: CROHN^S DISEASE
     Route: 042
     Dates: start: 200910, end: 2012
  5. PRILOSEC [Concomitant]
     Active Substance: OMEPRAZOLE MAGNESIUM
     Route: 065
  6. MULTIVITAMINS [Concomitant]
     Active Substance: VITAMINS
     Route: 065
  7. REMICADE [Suspect]
     Active Substance: INFLIXIMAB
     Indication: CROHN^S DISEASE
     Route: 042
     Dates: start: 20120316, end: 20120316

REACTIONS (22)
  - Oropharyngeal pain [Recovering/Resolving]
  - Immune system disorder [Not Recovered/Not Resolved]
  - Vasculitis [Not Recovered/Not Resolved]
  - Anaemia [Unknown]
  - Headache [Not Recovered/Not Resolved]
  - Hypersomnia [Recovering/Resolving]
  - Idiopathic angioedema [Recovering/Resolving]
  - Mental disorder [Recovering/Resolving]
  - Urinary tract infection bacterial [Recovering/Resolving]
  - Idiopathic urticaria [Recovering/Resolving]
  - Myopia [Unknown]
  - Astigmatism [Unknown]
  - Memory impairment [Recovering/Resolving]
  - Metamorphopsia [Unknown]
  - Presbyopia [Unknown]
  - Influenza [Not Recovered/Not Resolved]
  - Hypersensitivity [Not Recovered/Not Resolved]
  - Back pain [Not Recovered/Not Resolved]
  - Serum sickness [Recovering/Resolving]
  - Nasal ulcer [Recovered/Resolved]
  - Vitreous detachment [Unknown]
  - Mouth ulceration [Recovered/Resolved]

NARRATIVE: CASE EVENT DATE: 2012
